FAERS Safety Report 9463936 (Version 1)
Quarter: 2013Q3

REPORT INFORMATION
  Report Type: Spontaneous
  Country: DE (occurrence: DE)
  Receive Date: 20130819
  Receipt Date: 20130819
  Transmission Date: 20140515
  Serious: Yes (Hospitalization, Other)
  Sender: FDA-Public Use
  Company Number: DE-MYLANLABS-2013S1017388

PATIENT
  Sex: Male
  Weight: 3.44 kg

DRUGS (1)
  1. FLUOXETIN [Suspect]
     Dosage: 20 [MG/D ]
     Route: 064
     Dates: start: 20080122, end: 20081014

REACTIONS (5)
  - Drug withdrawal syndrome neonatal [Recovered/Resolved]
  - Oxygen saturation decreased [Recovered/Resolved]
  - Exposure during pregnancy [Recovered/Resolved]
  - Posture abnormal [Recovered/Resolved]
  - Cyanosis [Recovered/Resolved]
